FAERS Safety Report 15742202 (Version 2)
Quarter: 2019Q3

REPORT INFORMATION
  Report Type: Report from Study
  Country: JP (occurrence: JP)
  Receive Date: 20181219
  Receipt Date: 20190716
  Transmission Date: 20191004
  Serious: Yes (Hospitalization)
  Sender: FDA-Public Use
  Company Number: JP-BEH-2018097793

PATIENT
  Age: 69 Year
  Sex: Male
  Weight: 80 kg

DRUGS (21)
  1. BERIPLEX P/N [Suspect]
     Active Substance: COAGULATION FACTOR IX HUMAN\COAGULATION FACTOR VII HUMAN\COAGULATION FACTOR X HUMAN\PROTEIN C\PROTEIN S HUMAN\PROTHROMBIN
     Indication: SURGERY
     Dosage: UNK
     Route: 042
  2. BERIPLEX P/N [Suspect]
     Active Substance: COAGULATION FACTOR IX HUMAN\COAGULATION FACTOR VII HUMAN\COAGULATION FACTOR X HUMAN\PROTEIN C\PROTEIN S HUMAN\PROTHROMBIN
     Indication: SURGERY
     Dosage: UNK
     Route: 042
  3. METHYCOBAL [Concomitant]
     Active Substance: METHYLCOBALAMIN
     Route: 048
  4. K CIT [Concomitant]
     Route: 048
  5. BENZBROMARONE [Concomitant]
     Active Substance: BENZBROMARONE
     Route: 048
  6. TAMBOCOR [Concomitant]
     Active Substance: FLECAINIDE ACETATE
     Route: 048
  7. BERIPLEX P/N [Suspect]
     Active Substance: COAGULATION FACTOR IX HUMAN\COAGULATION FACTOR VII HUMAN\COAGULATION FACTOR X HUMAN\PROTEIN C\PROTEIN S HUMAN\PROTHROMBIN
     Indication: EMERGENCY CARE
     Dosage: 2000 IU, TOT
     Route: 042
     Dates: start: 20180519
  8. ADETPHOS [Concomitant]
     Active Substance: ADENOSINE TRIPHOSPHATE
     Route: 048
  9. SIMVASTATIN. [Concomitant]
     Active Substance: SIMVASTATIN
     Route: 048
  10. XYLOCAINE [Concomitant]
     Active Substance: LIDOCAINE HYDROCHLORIDE
     Indication: SURGERY
     Dosage: UNK
     Route: 065
     Dates: start: 20180519, end: 20180519
  11. WARFARIN [Concomitant]
     Active Substance: WARFARIN
     Indication: PROPHYLAXIS
  12. APLACE [Concomitant]
     Active Substance: TROXIPIDE
     Route: 048
  13. MARCAINE [Concomitant]
     Active Substance: BUPIVACAINE HYDROCHLORIDE
     Indication: SURGERY
     Dosage: UNK
     Route: 065
     Dates: start: 20180519, end: 20180519
  14. LIXIANA [Concomitant]
     Active Substance: EDOXABAN TOSYLATE
     Indication: ATRIAL FIBRILLATION
     Dosage: 60 MG, QD
     Route: 048
     Dates: start: 20180530
  15. CEFAZOLINA [Concomitant]
     Active Substance: CEFAZOLIN SODIUM
     Indication: ANTIBIOTIC THERAPY
     Dosage: UNK
     Route: 065
     Dates: start: 20180519, end: 20180522
  16. ADONA                              /00056903/ [Concomitant]
     Active Substance: CARBAZOCHROME SODIUM SULFONATE
     Indication: HAEMOSTASIS
     Dosage: UNK
     Route: 065
     Dates: start: 20180519, end: 20180519
  17. SODIUM CITRATE. [Concomitant]
     Active Substance: SODIUM CITRATE
     Route: 048
  18. BERIPLEX P/N [Suspect]
     Active Substance: COAGULATION FACTOR IX HUMAN\COAGULATION FACTOR VII HUMAN\COAGULATION FACTOR X HUMAN\PROTEIN C\PROTEIN S HUMAN\PROTHROMBIN
     Indication: EMERGENCY CARE
     Dosage: 2000 IU, TOT
     Route: 042
     Dates: start: 20180519
  19. LIXIANA [Concomitant]
     Active Substance: EDOXABAN TOSYLATE
     Indication: PROPHYLAXIS
  20. TRANEXAMIC ACID. [Concomitant]
     Active Substance: TRANEXAMIC ACID
     Indication: HAEMOSTASIS
     Dosage: UNK
     Route: 065
     Dates: start: 20180519, end: 20180519
  21. WARFARIN [Concomitant]
     Active Substance: WARFARIN
     Indication: ATRIAL FIBRILLATION
     Dosage: 1 MILLIGRAM, QD
     Route: 048
     Dates: end: 20180519

REACTIONS (2)
  - Restlessness [Recovering/Resolving]
  - Cerebral infarction [Recovering/Resolving]

NARRATIVE: CASE EVENT DATE: 20180522
